FAERS Safety Report 10375324 (Version 1)
Quarter: 2014Q3

REPORT INFORMATION
  Report Type: Spontaneous
  Country: US (occurrence: None)
  Receive Date: 20140806
  Receipt Date: 20140806
  Transmission Date: 20150326
  Serious: Yes (Other)
  Sender: FDA-Public Use
  Company Number: 2013-002278

PATIENT
  Age: 6 Year
  Sex: Male

DRUGS (1)
  1. ASACOL [Suspect]
     Active Substance: MESALAMINE
     Route: 064

REACTIONS (2)
  - Maternal drugs affecting foetus [None]
  - Dentofacial anomaly [None]
